FAERS Safety Report 6266077-6 (Version None)
Quarter: 2009Q3

REPORT INFORMATION
  Report Type: 
  Country: None (occurrence: None)
  Receive Date: 20090713
  Receipt Date: 20090702
  Transmission Date: 20100115
  Serious: Yes (Life-Threatening, Hospitalization)
  Sender: FDA-Public Use
  Company Number: BR-JNJFOC-20090500105

PATIENT
  Sex: Male
  Weight: 42 kg

DRUGS (10)
  1. REMICADE [Suspect]
     Indication: ANAL FISTULA
     Dosage: 1ST AND 2ND INFUSION IN MAR-2009
     Route: 042
  2. REMICADE [Suspect]
     Indication: CROHN'S DISEASE
     Dosage: 1ST AND 2ND INFUSION IN MAR-2009
     Route: 042
  3. MESALAZINE [Concomitant]
     Indication: ANAL FISTULA
     Route: 048
  4. MESALAZINE [Concomitant]
     Indication: CROHN'S DISEASE
     Dosage: 5 MG/KG
     Route: 048
  5. METRONIDAZOLE [Concomitant]
     Route: 042
  6. PANTOPRAZOLE SODIUM [Concomitant]
     Route: 042
  7. FLEBOCORTID [Concomitant]
     Indication: ANAL FISTULA
     Route: 042
  8. FLEBOCORTID [Concomitant]
     Indication: CROHN'S DISEASE
     Route: 042
  9. CEFTRIAXONE [Concomitant]
     Indication: ANAL FISTULA
     Route: 042
  10. CEFTRIAXONE [Concomitant]
     Indication: CROHN'S DISEASE
     Route: 042

REACTIONS (4)
  - ANAPHYLACTIC SHOCK [None]
  - CONVULSION [None]
  - HYPERTENSION [None]
  - INFUSION RELATED REACTION [None]
